FAERS Safety Report 4417036-7 (Version None)
Quarter: 2004Q3

REPORT INFORMATION
  Report Type: 
  Country: None (occurrence: None)
  Receive Date: 20040802
  Receipt Date: 20040728
  Transmission Date: 20050211
  Serious: Yes (Other)
  Sender: FDA-Public Use
  Company Number: 2004222270US

PATIENT
  Age: 13 Year
  Sex: Female

DRUGS (1)
  1. R-GENE 10 [Suspect]
     Dates: start: 20040625, end: 20040625

REACTIONS (5)
  - CONJUNCTIVAL HAEMORRHAGE [None]
  - GLOMERULONEPHRITIS PROLIFERATIVE [None]
  - HAEMORRHAGE URINARY TRACT [None]
  - PHARMACEUTICAL PRODUCT COMPLAINT [None]
  - URINARY INCONTINENCE [None]
